FAERS Safety Report 9424144 (Version 7)
Quarter: 2014Q3

REPORT INFORMATION
  Report Type: Spontaneous
  Country: IT (occurrence: IT)
  Receive Date: 20130729
  Receipt Date: 20140714
  Transmission Date: 20150326
  Serious: Yes (Hospitalization)
  Sender: FDA-Public Use
  Company Number: IT-AMGEN-ITASP2013051963

PATIENT
  Age: 73 Year
  Sex: Male

DRUGS (20)
  1. RITUXIMAB [Concomitant]
     Active Substance: RITUXIMAB
     Dosage: 1400 MG, Q3WK
     Route: 058
     Dates: start: 20130118, end: 20130118
  2. RITUXIMAB [Concomitant]
     Active Substance: RITUXIMAB
     Dosage: 686 MG FULL DOSE, UNK
     Route: 042
     Dates: start: 20130405, end: 20130405
  3. LEVOFLOXACIN /01278903/ [Suspect]
     Active Substance: LEVOFLOXACIN
     Indication: PYREXIA
     Dosage: 500 MG, 1 IN 1 D
     Route: 048
     Dates: start: 20130308, end: 20130322
  4. FLUCONAZOLE. [Suspect]
     Active Substance: FLUCONAZOLE
     Indication: FEBRILE NEUTROPENIA
     Dosage: 400 MG, 1 IN 1 D
     Route: 048
     Dates: start: 20130405, end: 20130505
  5. RITUXIMAB [Concomitant]
     Active Substance: RITUXIMAB
     Indication: B-CELL LYMPHOMA
     Dosage: 686 MG SINGLE FULL DOSE, UNK
     Route: 042
     Dates: start: 20121228, end: 20121228
  6. FILGRASTIM [Suspect]
     Active Substance: FILGRASTIM
     Indication: PRODUCT USED FOR UNKNOWN INDICATION
     Dosage: UNK
     Route: 065
  7. LANSOPRAZOLE. [Suspect]
     Active Substance: LANSOPRAZOLE
     Indication: PRODUCT USED FOR UNKNOWN INDICATION
     Dosage: UNK
     Route: 065
  8. RITUXIMAB [Concomitant]
     Active Substance: RITUXIMAB
     Indication: DIFFUSE LARGE B-CELL LYMPHOMA
     Dosage: LAST DOSE PRIOR TO SAE, 750 MG, UNK
     Route: 042
     Dates: start: 20121217
  9. RITUXIMAB [Concomitant]
     Active Substance: RITUXIMAB
     Dosage: LAST DOSE PRIOR TO SAE, 375 MG, UNK
     Route: 042
     Dates: start: 20121228, end: 20130502
  10. RITUXIMAB [Concomitant]
     Active Substance: RITUXIMAB
     Dosage: 1400 MG, Q3WK
     Route: 058
     Dates: start: 20130208, end: 20130208
  11. PREDNISONE. [Suspect]
     Active Substance: PREDNISONE
     Indication: PRODUCT USED FOR UNKNOWN INDICATION
     Dosage: UNK
     Route: 065
  12. RITUXIMAB [Concomitant]
     Active Substance: RITUXIMAB
     Dosage: 1400 MG, Q3WK
     Route: 058
     Dates: start: 20130308, end: 20130308
  13. OMEPRAZOLE. [Concomitant]
     Active Substance: OMEPRAZOLE
     Indication: ABDOMINAL PAIN UPPER
     Dosage: 20 MG, EVERY DAY
     Route: 048
     Dates: start: 20121228, end: 20130502
  14. CEFTRIAXONE                        /00672202/ [Concomitant]
     Indication: PYREXIA
     Dosage: 2 G, 1 IN 1 D, 5 DAYS
     Route: 030
     Dates: start: 20130301, end: 20130305
  15. HEPARINE                           /00027704/ [Concomitant]
     Dosage: UNK
  16. ACICLOVIR [Concomitant]
     Active Substance: ACYCLOVIR
     Indication: PYREXIA
     Dosage: 400 MG, 1 IN 12 HR
     Route: 048
     Dates: start: 20130405, end: 20130502
  17. ACICLOVIR [Concomitant]
     Active Substance: ACYCLOVIR
     Dosage: UNK
     Dates: start: 20130502
  18. ALLOPURINOL. [Suspect]
     Active Substance: ALLOPURINOL
     Indication: TUMOUR LYSIS SYNDROME
     Dosage: 300 MG, EVERY OTHER DAY
     Route: 048
     Dates: start: 20121228, end: 20130502
  19. FLUCONAZOLE. [Suspect]
     Active Substance: FLUCONAZOLE
     Dosage: 400 MG, DAILY
     Route: 048
     Dates: start: 20130506
  20. RITUXIMAB [Concomitant]
     Active Substance: RITUXIMAB
     Dosage: UNK
     Route: 058
     Dates: start: 20121228, end: 20130508

REACTIONS (3)
  - Pulmonary embolism [Recovered/Resolved]
  - Hepatic enzyme increased [Recovered/Resolved]
  - Febrile neutropenia [Recovered/Resolved]

NARRATIVE: CASE EVENT DATE: 20130323
